FAERS Safety Report 7073164-1 (Version None)
Quarter: 2010Q4

REPORT INFORMATION
  Report Type: 
  Country: None (occurrence: None)
  Receive Date: 20101029
  Receipt Date: 20100505
  Transmission Date: 20110411
  Serious: No
  Sender: FDA-Public Use
  Company Number: A0858378A

PATIENT
  Sex: Male

DRUGS (9)
  1. ADVAIR DISKUS 100/50 [Suspect]
     Indication: CHRONIC OBSTRUCTIVE PULMONARY DISEASE
     Dosage: 2PUFF TWICE PER DAY
     Route: 055
  2. ASPIRIN [Concomitant]
  3. DIGOXIN [Concomitant]
  4. COREG [Concomitant]
  5. LASIX [Concomitant]
  6. POTASSIUM CHLORIDE [Concomitant]
  7. MULTI-VITAMIN [Concomitant]
  8. LIPITOR [Concomitant]
  9. VENTOLIN [Concomitant]

REACTIONS (5)
  - HEADACHE [None]
  - INHALATION THERAPY [None]
  - PRODUCTIVE COUGH [None]
  - SALIVA ALTERED [None]
  - THROAT IRRITATION [None]
